FAERS Safety Report 11422788 (Version 1)
Quarter: 2015Q3

REPORT INFORMATION
  Report Type: Spontaneous
  Country: US (occurrence: US)
  Receive Date: 20150827
  Receipt Date: 20150827
  Transmission Date: 20151125
  Serious: Yes (Other)
  Sender: FDA-Public Use
  Company Number: 2015SP002917

PATIENT
  Sex: Female

DRUGS (2)
  1. LATUDA [Suspect]
     Active Substance: LURASIDONE HYDROCHLORIDE
     Route: 048
     Dates: start: 20150615
  2. LATUDA [Suspect]
     Active Substance: LURASIDONE HYDROCHLORIDE
     Route: 048
     Dates: start: 20150720

REACTIONS (4)
  - Tongue geographic [Recovered/Resolved]
  - Swollen tongue [Recovered/Resolved]
  - Respiratory disorder [Recovered/Resolved]
  - Tongue exfoliation [Recovered/Resolved]

NARRATIVE: CASE EVENT DATE: 20150804
